FAERS Safety Report 6701828-5 (Version None)
Quarter: 2010Q2

REPORT INFORMATION
  Report Type: 
  Country: None (occurrence: None)
  Receive Date: 20100429
  Receipt Date: 20091231
  Transmission Date: 20101027
  Serious: Yes (Other)
  Sender: FDA-Public Use
  Company Number: US-BAYER-200811982NA

PATIENT
  Age: 49 Year
  Sex: Female
  Weight: 55 kg

DRUGS (32)
  1. MAGNEVIST [Suspect]
     Indication: NUCLEAR MAGNETIC RESONANCE IMAGING ABDOMINAL
     Dosage: TOTAL DAILY DOSE: 10.9 ML  UNIT DOSE: 15 ML
     Dates: start: 19961030, end: 19961030
  2. MAGNEVIST [Suspect]
     Dosage: TOTAL DAILY DOSE: 9.8 ML  UNIT DOSE: 15 ML
     Dates: start: 19970430, end: 19970430
  3. MAGNEVIST [Suspect]
     Dosage: TOTAL DAILY DOSE: 10.8 ML  UNIT DOSE: 15 ML
     Dates: start: 19971117, end: 19971117
  4. MAGNEVIST [Suspect]
     Dates: start: 19981231, end: 19981231
  5. MAGNEVIST [Suspect]
     Dates: start: 19991109, end: 19991109
  6. MAGNEVIST [Suspect]
     Dosage: TOTAL DAILY DOSE: 9.1 ML  UNIT DOSE: 15 ML
     Dates: start: 20001108, end: 20001108
  7. MAGNEVIST [Suspect]
     Dates: start: 20020130, end: 20020130
  8. MAGNEVIST [Suspect]
     Dates: start: 20050130, end: 20050130
  9. MAGNEVIST [Suspect]
     Dates: start: 20040520, end: 20040520
  10. OMNISCAN [Suspect]
     Indication: NUCLEAR MAGNETIC RESONANCE IMAGING
     Dates: start: 20050130, end: 20050130
  11. OMNISCAN [Suspect]
     Dates: start: 20050320, end: 20050320
  12. MAGNEVIST [Suspect]
     Indication: NUCLEAR MAGNETIC RESONANCE IMAGING ABDOMINAL
     Dosage: TOTAL DAILY DOSE: 9.7 ML  UNIT DOSE: 100 ML
     Dates: start: 20030320, end: 20030320
  13. EPOGEN [Concomitant]
  14. PREMPRO [Concomitant]
  15. SYNTHROID [Concomitant]
  16. FOLIC ACID [Concomitant]
  17. CELEBREX [Concomitant]
  18. CALCIMETRIC [Concomitant]
  19. ZESTRIL [Concomitant]
  20. ROCALTROL [Concomitant]
  21. NEPHROVITE [Concomitant]
  22. FERROUS SULFATE TAB [Concomitant]
  23. MIACALCIN [Concomitant]
  24. RENAGEL [Concomitant]
  25. ALEVE (CAPLET) [Concomitant]
  26. PROCARDIA [Concomitant]
  27. SENSIPAR [Concomitant]
  28. PROGRAF [Concomitant]
  29. MYFORTIC [Concomitant]
  30. PREDNISONE [Concomitant]
  31. SPIRONOLACTONE [Concomitant]
  32. ADVAIR DISKUS 100/50 [Concomitant]

REACTIONS (24)
  - GAIT DISTURBANCE [None]
  - GENERAL PHYSICAL HEALTH DETERIORATION [None]
  - HYPOAESTHESIA [None]
  - INJURY [None]
  - JOINT CONTRACTURE [None]
  - JOINT RANGE OF MOTION DECREASED [None]
  - MUSCULAR WEAKNESS [None]
  - MUSCULOSKELETAL PAIN [None]
  - MUSCULOSKELETAL STIFFNESS [None]
  - MYOCARDIAL FIBROSIS [None]
  - NEPHROGENIC SYSTEMIC FIBROSIS [None]
  - OEDEMA PERIPHERAL [None]
  - PAIN [None]
  - PARAESTHESIA [None]
  - PULMONARY FIBROSIS [None]
  - SCAR [None]
  - SKIN DISORDER [None]
  - SKIN HYPERPIGMENTATION [None]
  - SKIN HYPERTROPHY [None]
  - SKIN INDURATION [None]
  - SKIN LESION [None]
  - SKIN TIGHTNESS [None]
  - SKIN WRINKLING [None]
  - TENDON PAIN [None]
